FAERS Safety Report 13432908 (Version 1)
Quarter: 2017Q2

REPORT INFORMATION
  Report Type: Spontaneous
  Country: US (occurrence: US)
  Receive Date: 20170412
  Receipt Date: 20170412
  Transmission Date: 20170830
  Serious: No
  Sender: FDA-Public Use
  Company Number: US-NOVOPROD-527599

PATIENT
  Age: 66 Year
  Sex: Female

DRUGS (1)
  1. SAXENDA [Suspect]
     Active Substance: LIRAGLUTIDE
     Indication: WEIGHT DECREASED
     Route: 058
     Dates: start: 201611

REACTIONS (4)
  - Nausea [Recovered/Resolved]
  - Hunger [Not Recovered/Not Resolved]
  - Weight increased [Unknown]
  - Drug ineffective [Not Recovered/Not Resolved]

NARRATIVE: CASE EVENT DATE: 201611
